FAERS Safety Report 8483081-8 (Version None)
Quarter: 2012Q3

REPORT INFORMATION
  Report Type: 
  Country: None (occurrence: None)
  Receive Date: 20120702
  Receipt Date: 20120628
  Transmission Date: 20120928
  Serious: No
  Sender: FDA-Public Use
  Company Number: US-TEVA-346096USA

PATIENT
  Sex: Female
  Weight: 60.836 kg

DRUGS (3)
  1. PLAN B ONE-STEP [Suspect]
     Indication: POST COITAL CONTRACEPTION
     Dosage: 1.5 MILLIGRAM;
     Route: 048
     Dates: start: 20120628, end: 20120628
  2. CLONAZEPAM [Concomitant]
     Indication: DEPRESSION
  3. VENLAFAXINE [Concomitant]
     Indication: DEPRESSION

REACTIONS (2)
  - PELVIC PAIN [None]
  - NAUSEA [None]
